FAERS Safety Report 23569170 (Version 1)
Quarter: 2024Q1

REPORT INFORMATION
  Report Type: Report from Study
  Country: US (occurrence: US)
  Receive Date: 20240227
  Receipt Date: 20240227
  Transmission Date: 20240410
  Serious: Yes (Hospitalization)
  Sender: FDA-Public Use
  Company Number: US-ABBVIE-4711769

PATIENT
  Sex: Male

DRUGS (1)
  1. VENCLEXTA [Suspect]
     Active Substance: VENETOCLAX
     Indication: Acute myeloid leukaemia
     Dosage: DAY 1 TO 14 OF EACH 28-DAY CYCLE. TAKE WITH FOOD. DO NOT BREAK OR CRUSH TABLET?FORM STRENGTH: 100...
     Route: 048

REACTIONS (3)
  - Surgery [Unknown]
  - Off label use [Unknown]
  - Hospitalisation [Unknown]
